FAERS Safety Report 7520900-3 (Version None)
Quarter: 2011Q2

REPORT INFORMATION
  Report Type: 
  Country: None (occurrence: None)
  Receive Date: 20110603
  Receipt Date: 20101123
  Transmission Date: 20111010
  Serious: Yes (Other)
  Sender: FDA-Public Use
  Company Number: US-BAYER-201047792GPV

PATIENT
  Age: 71 Year
  Sex: Female

DRUGS (2)
  1. DACARBAZINE [Suspect]
     Indication: METASTATIC MALIGNANT MELANOMA
     Dosage: 1 CYCLE
     Route: 042
  2. LENALIDOMIDE [Suspect]
     Indication: METASTATIC MALIGNANT MELANOMA
     Dosage: FOR 14 DAYS FOLLOWED BY A 7-DAY REST, 1 CYCLE
     Route: 048

REACTIONS (2)
  - HEMIANOPIA [None]
  - CEREBRAL ISCHAEMIA [None]
